FAERS Safety Report 5279247-0 (Version None)
Quarter: 2007Q1

REPORT INFORMATION
  Report Type: 
  Country: None (occurrence: None)
  Receive Date: 20070322
  Receipt Date: 20070309
  Transmission Date: 20070707
  Serious: Yes (Death, Hospitalization)
  Sender: FDA-Public Use
  Company Number: CERZ-11555

PATIENT
  Age: 58 Year
  Sex: Female
  Weight: 62 kg

DRUGS (1)
  1. CEREZYME [Suspect]
     Indication: GAUCHER'S DISEASE
     Dates: start: 20000228, end: 20060804

REACTIONS (15)
  - BRONCHIAL DISORDER [None]
  - DISEASE PROGRESSION [None]
  - DISSEMINATED INTRAVASCULAR COAGULATION [None]
  - GALLBLADDER CANCER [None]
  - HAEMANGIOMA [None]
  - HAEMORRHAGE INTRACRANIAL [None]
  - METASTASES TO CENTRAL NERVOUS SYSTEM [None]
  - METASTASIS [None]
  - MOUNTAIN SICKNESS ACUTE [None]
  - PLEURAL DISORDER [None]
  - PLEURAL HAEMORRHAGE [None]
  - PROCEDURAL COMPLICATION [None]
  - PULMONARY OEDEMA [None]
  - RESPIRATORY FAILURE [None]
  - SEPSIS [None]
